FAERS Safety Report 7167149-4 (Version None)
Quarter: 2010Q4

REPORT INFORMATION
  Report Type: 
  Country: None (occurrence: None)
  Receive Date: 20101216
  Receipt Date: 20101215
  Transmission Date: 20110411
  Serious: Yes (Other)
  Sender: FDA-Public Use
  Company Number: GXKR2009DE10001

PATIENT
  Sex: Female
  Weight: 70 kg

DRUGS (4)
  1. ALLOPURINOL HEXAL (NGX) [Suspect]
     Indication: HYPERURICAEMIA
     Dosage: 100 MG, QD
     Route: 048
     Dates: start: 20050101, end: 20080101
  2. RAMIPRIL PLUS [Concomitant]
     Indication: HYPERTENSION
     Dosage: 1 DF (5/25 MG), QD
     Route: 048
     Dates: start: 20040101, end: 20080101
  3. ERGENYL ^LABAZ^ [Concomitant]
     Dosage: 1.5 - 0 - 1.5 DAILY
     Route: 048
  4. RASILEZ [Concomitant]
     Indication: HYPERTENSION
     Dosage: 150 MG, QD
     Route: 048
     Dates: start: 20080101

REACTIONS (6)
  - ALOPECIA [None]
  - ARTHRALGIA [None]
  - ECZEMA [None]
  - MACULAR DEGENERATION [None]
  - RETINAL DISORDER [None]
  - VISUAL IMPAIRMENT [None]
